FAERS Safety Report 8178105-1 (Version None)
Quarter: 2012Q1

REPORT INFORMATION
  Report Type: 
  Country: None (occurrence: None)
  Receive Date: 20120301
  Receipt Date: 20120220
  Transmission Date: 20120608
  Serious: Yes (Hospitalization, Other)
  Sender: FDA-Public Use
  Company Number: US-ELI_LILLY_AND_COMPANY-US201202006356

PATIENT
  Sex: Male

DRUGS (2)
  1. HUMULIN R [Suspect]
     Indication: DIABETES MELLITUS
     Dosage: UNK
     Route: 058
     Dates: start: 19970101
  2. HUMULIN R [Suspect]
     Dosage: UNK
     Route: 058
     Dates: start: 19970101

REACTIONS (8)
  - PNEUMONIA [None]
  - DRUG INEFFECTIVE [None]
  - CARDIAC PACEMAKER INSERTION [None]
  - VASCULAR GRAFT [None]
  - FOOT OPERATION [None]
  - CORONARY ARTERIAL STENT INSERTION [None]
  - BLOOD GLUCOSE INCREASED [None]
  - STENT PLACEMENT [None]
